FAERS Safety Report 6335934-4 (Version None)
Quarter: 2009Q3

REPORT INFORMATION
  Report Type: 
  Country: None (occurrence: None)
  Receive Date: 20090831
  Receipt Date: 20090831
  Transmission Date: 20100115
  Serious: Yes (Life-Threatening, Disabling, Other)
  Sender: FDA-Public Use
  Company Number: None

PATIENT
  Age: 49 Year
  Sex: Female
  Weight: 79.3795 kg

DRUGS (1)
  1. ALDARA [Suspect]
     Indication: PRECANCEROUS CELLS PRESENT
     Dosage: DAB ON SPOTS 1X DAILY
     Dates: start: 20090430, end: 20090515

REACTIONS (18)
  - ABASIA [None]
  - ABDOMINAL PAIN [None]
  - APPARENT DEATH [None]
  - BACK PAIN [None]
  - BLOOD DISORDER [None]
  - FATIGUE [None]
  - HEADACHE [None]
  - HYPOAESTHESIA [None]
  - IMPAIRED WORK ABILITY [None]
  - INFECTION [None]
  - MEDICATION ERROR [None]
  - MUSCLE INJURY [None]
  - NERVE INJURY [None]
  - PAIN [None]
  - POISONING [None]
  - PYREXIA [None]
  - SCAB [None]
  - WALKING AID USER [None]
